FAERS Safety Report 9455102 (Version 2)
Quarter: 2013Q3

REPORT INFORMATION
  Report Type: Spontaneous
  Country: US (occurrence: US)
  Receive Date: 20130813
  Receipt Date: 20130930
  Transmission Date: 20140515
  Serious: Yes (Hospitalization)
  Sender: FDA-Public Use
  Company Number: US-BIOGENIDEC-2013BI074922

PATIENT
  Age: 32 Year
  Sex: Female

DRUGS (8)
  1. TYSABRI [Suspect]
     Indication: MULTIPLE SCLEROSIS
     Route: 042
     Dates: start: 20130801
  2. PROZAC [Concomitant]
     Indication: DEPRESSION
  3. MORPHINE [Concomitant]
     Indication: INTERVERTEBRAL DISC DEGENERATION
  4. MORPHINE [Concomitant]
     Indication: BACK PAIN
  5. MORPHINE [Concomitant]
     Indication: PAIN IN EXTREMITY
  6. OXYCODONE [Concomitant]
     Indication: INTERVERTEBRAL DISC DEGENERATION
  7. OXYCODONE [Concomitant]
     Indication: PAIN
  8. GALINA (PRESUME GILENYA) [Concomitant]
     Indication: MULTIPLE SCLEROSIS

REACTIONS (13)
  - Liver injury [Recovered/Resolved]
  - Depressed level of consciousness [Recovered/Resolved]
  - Deafness transitory [Recovered/Resolved]
  - Dyspnoea [Recovered/Resolved]
  - Pruritus generalised [Recovered/Resolved]
  - Infusion site pain [Recovered/Resolved]
  - Arthralgia [Recovered/Resolved]
  - Pyrexia [Recovered/Resolved]
  - Eye swelling [Not Recovered/Not Resolved]
  - Swelling face [Not Recovered/Not Resolved]
  - Hepatic enzyme abnormal [Unknown]
  - Pain in extremity [Not Recovered/Not Resolved]
  - Back pain [Unknown]
